FAERS Safety Report 5211581-2 (Version None)
Quarter: 2007Q1

REPORT INFORMATION
  Report Type: 
  Country: None (occurrence: None)
  Receive Date: 20070116
  Receipt Date: 20070116
  Transmission Date: 20070707
  Serious: Yes (Hospitalization)
  Sender: FDA-Public Use
  Company Number: None

PATIENT
  Age: 77 Year
  Sex: Female
  Weight: 63.6 kg

DRUGS (13)
  1. ABILIFY [Suspect]
     Indication: BIPOLAR DISORDER
     Dosage: 20MG  DAILY  PO   PRIOR TO ADMISSION
     Route: 048
  2. RANEXA [Suspect]
     Indication: ANGINA PECTORIS
     Dosage: 500MG  BID  PO
     Route: 048
     Dates: start: 20061005, end: 20061010
  3. ASPIRIN [Concomitant]
  4. PANTOPRAZOLE SODIUM [Concomitant]
  5. NITROGLYCERIN [Concomitant]
  6. ENOXAPARIN SODIUM [Concomitant]
  7. FUROSEMIDE [Concomitant]
  8. POTASSIUM CHLORIDE [Concomitant]
  9. CARVEDILOL [Concomitant]
  10. LISINOPRIL [Concomitant]
  11. INSULIN [Concomitant]
  12. BACTRIM DS [Concomitant]
  13. CIPRO [Concomitant]

REACTIONS (7)
  - DRUG LEVEL INCREASED [None]
  - HYPOMETABOLISM [None]
  - MENTAL STATUS CHANGES [None]
  - MOVEMENT DISORDER [None]
  - MUSCLE RIGIDITY [None]
  - PARKINSON'S DISEASE [None]
  - TREMOR [None]
